FAERS Safety Report 9205344 (Version 1)
Quarter: 2013Q2

REPORT INFORMATION
  Report Type: Spontaneous
  Country: US (occurrence: US)
  Receive Date: 20130402
  Receipt Date: 20130402
  Transmission Date: 20140414
  Serious: Yes (Hospitalization)
  Sender: FDA-Public Use
  Company Number: US-B.I. PHARMACEUTICALS,INC./RIDGEFIELD-2013-BI-08393BP

PATIENT
  Age: 59 Year
  Sex: Female
  Weight: 56 kg

DRUGS (10)
  1. SPIRIVA [Suspect]
     Indication: CHRONIC OBSTRUCTIVE PULMONARY DISEASE
     Dosage: 18 MCG
     Route: 055
     Dates: start: 2011
  2. THYROID MEDICATION [Concomitant]
     Route: 048
  3. PLAVIX [Concomitant]
     Dosage: 75 MG
     Route: 048
  4. LIPITOR [Concomitant]
     Indication: BLOOD CHOLESTEROL INCREASED
     Dosage: 20 MG
     Route: 048
  5. MECLIZINE [Concomitant]
     Dosage: 12.5 MG
     Route: 048
  6. METHIMAZOLE [Concomitant]
     Dosage: 10 MG
     Route: 048
  7. CLONAZEPAM [Concomitant]
     Dosage: 1 MG
     Route: 048
  8. SERTRALINE [Concomitant]
     Dosage: 100 MG
     Route: 048
  9. SEREVENT [Concomitant]
     Route: 055
  10. PROAIR [Concomitant]
     Route: 055

REACTIONS (2)
  - Myocardial infarction [Recovered/Resolved]
  - Cerebrovascular accident [Recovered/Resolved with Sequelae]
